FAERS Safety Report 6194144-4 (Version None)
Quarter: 2009Q2

REPORT INFORMATION
  Report Type: 
  Country: None (occurrence: None)
  Receive Date: 20090518
  Receipt Date: 20090507
  Transmission Date: 20091009
  Serious: Yes (Other)
  Sender: FDA-Public Use
  Company Number: US-JNJCH-2009013114

PATIENT
  Age: 45 Year
  Sex: Female

DRUGS (1)
  1. BENADRYL [Suspect]
     Indication: ACCIDENTAL EXPOSURE
     Dosage: TEXT:UNSPECIFIED
     Route: 048

REACTIONS (3)
  - ACCIDENTAL EXPOSURE [None]
  - DYSPHAGIA [None]
  - DYSPHONIA [None]
